FAERS Safety Report 20446039 (Version 1)
Quarter: 2022Q1

REPORT INFORMATION
  Report Type: Spontaneous
  Country: IN (occurrence: IN)
  Receive Date: 20220208
  Receipt Date: 20220208
  Transmission Date: 20220423
  Serious: Yes (Hospitalization, Other)
  Sender: FDA-Public Use
  Company Number: IN-SUNOVION-2022SUN000378

PATIENT
  Age: 52 Year
  Sex: Female

DRUGS (3)
  1. LURASIDONE HYDROCHLORIDE [Suspect]
     Active Substance: LURASIDONE HYDROCHLORIDE
     Indication: Bipolar disorder
     Dosage: 40 MG, QD
     Route: 048
  2. LURASIDONE HYDROCHLORIDE [Suspect]
     Active Substance: LURASIDONE HYDROCHLORIDE
     Dosage: UNK (UPTO 40MG)
     Route: 048
  3. VALPROATE SODIUM [Suspect]
     Active Substance: VALPROATE SODIUM
     Dosage: 800 MG, QD
     Route: 065

REACTIONS (17)
  - COVID-19 [Recovered/Resolved]
  - Bipolar disorder [Recovered/Resolved]
  - Suicidal ideation [Recovered/Resolved]
  - Depressed mood [Recovered/Resolved]
  - Fatigue [Recovered/Resolved]
  - Decreased interest [Recovered/Resolved]
  - Communication disorder [Recovered/Resolved]
  - Irritability [Recovered/Resolved]
  - Food refusal [Recovered/Resolved]
  - Tearfulness [Recovered/Resolved]
  - Feeling of despair [Recovered/Resolved]
  - Helplessness [Recovered/Resolved]
  - Negative thoughts [Recovered/Resolved]
  - Psychomotor retardation [Recovered/Resolved]
  - Decreased appetite [Recovered/Resolved]
  - Insomnia [Recovered/Resolved]
  - Product administration interrupted [Unknown]
